FAERS Safety Report 18255772 (Version 1)
Quarter: 2020Q3

REPORT INFORMATION
  Report Type: Other
  Country: US (occurrence: US)
  Receive Date: 20200910
  Receipt Date: 20200910
  Transmission Date: 20201103
  Serious: No
  Sender: FDA-Public Use
  Company Number: US-LEADIANT BIOSCIENCES INC-2019STPI000363

PATIENT

DRUGS (12)
  1. MAGNESIUM [Concomitant]
     Active Substance: MAGNESIUM
  2. BRIVIACT [Concomitant]
     Active Substance: BRIVARACETAM
  3. POTASSIUM [Concomitant]
     Active Substance: POTASSIUM
  4. MATULANE [Suspect]
     Active Substance: PROCARBAZINE HYDROCHLORIDE
     Indication: PRODUCT USED FOR UNKNOWN INDICATION
     Dosage: 100 MILLIGRAM, QD FOR 14DAYS
     Route: 048
     Dates: start: 20180626
  5. ATIVAN [Concomitant]
     Active Substance: LORAZEPAM
  6. CALCIUM [Concomitant]
     Active Substance: CALCIUM
  7. VIMPAT [Concomitant]
     Active Substance: LACOSAMIDE
  8. CELEX [CEFALEXIN MONOHYDRATE] [Concomitant]
  9. PROBIOTICS NOS [Concomitant]
     Active Substance: PROBIOTICS NOS
  10. ZOLOFT [Concomitant]
     Active Substance: SERTRALINE HYDROCHLORIDE
  11. IBUPROFEN. [Concomitant]
     Active Substance: IBUPROFEN
  12. VITAMINS NOS [Concomitant]
     Active Substance: VITAMINS
     Dosage: UNK

REACTIONS (1)
  - Nausea [Unknown]

NARRATIVE: CASE EVENT DATE: 2019
